FAERS Safety Report 18222283 (Version 1)
Quarter: 2020Q3

REPORT INFORMATION
  Report Type: Report from Study
  Country: CA (occurrence: CA)
  Receive Date: 20200902
  Receipt Date: 20200902
  Transmission Date: 20201103
  Serious: Yes (Hospitalization)
  Sender: FDA-Public Use
  Company Number: CA-ACCORD-198447

PATIENT
  Age: 72 Year
  Sex: Female

DRUGS (9)
  1. PREDNISONE. [Concomitant]
     Active Substance: PREDNISONE
  2. MYCOPHENOLIC ACID. [Suspect]
     Active Substance: MYCOPHENOLIC ACID
     Indication: PEMPHIGOID
     Route: 048
  3. HYDROCORTISONE. [Concomitant]
     Active Substance: HYDROCORTISONE
  4. DOCOSAHEXAENOIC ACID/EICOSAPENTAENOIC ACID [Concomitant]
     Active Substance: DOCONEXENT\ICOSAPENT
  5. RAMIPRIL. [Concomitant]
     Active Substance: RAMIPRIL
  6. BETAMETHASONE. [Concomitant]
     Active Substance: BETAMETHASONE
  7. XARELTO [Concomitant]
     Active Substance: RIVAROXABAN
  8. AMLODIPINE [Concomitant]
     Active Substance: AMLODIPINE BESYLATE
  9. DILTIAZEM. [Concomitant]
     Active Substance: DILTIAZEM

REACTIONS (3)
  - Diarrhoea [Not Recovered/Not Resolved]
  - Rectal haemorrhage [Not Recovered/Not Resolved]
  - Atrial fibrillation [Not Recovered/Not Resolved]
